FAERS Safety Report 5654055-7 (Version None)
Quarter: 2008Q1

REPORT INFORMATION
  Report Type: 
  Country: None (occurrence: None)
  Receive Date: 20080306
  Receipt Date: 20080227
  Transmission Date: 20080703
  Serious: Yes (Death)
  Sender: FDA-Public Use
  Company Number: US-PFIZER INC-2008012178

PATIENT
  Sex: Female

DRUGS (3)
  1. LIPITOR [Suspect]
  2. DETROL LA [Suspect]
  3. ZOLOFT [Suspect]

REACTIONS (1)
  - DEATH [None]
